FAERS Safety Report 14963573 (Version 1)
Quarter: 2018Q2

REPORT INFORMATION
  Report Type: Spontaneous
  Country: IT (occurrence: IT)
  Receive Date: 20180601
  Receipt Date: 20180601
  Transmission Date: 20180711
  Serious: Yes (Hospitalization)
  Sender: FDA-Public Use
  Company Number: IT-PFIZER INC-2018219968

PATIENT
  Age: 70 Year
  Sex: Female

DRUGS (6)
  1. TARGIN [Suspect]
     Active Substance: NALOXONE HYDROCHLORIDE\OXYCODONE HYDROCHLORIDE
     Indication: NEURALGIA
     Dosage: 40-20 MG, 2X/DAY
     Dates: start: 20170101, end: 20170822
  2. TARGIN [Suspect]
     Active Substance: NALOXONE HYDROCHLORIDE\OXYCODONE HYDROCHLORIDE
     Dosage: 60-30 MG, 1X/DAY
     Route: 048
     Dates: start: 20170823, end: 20170826
  3. KEPPRA [Concomitant]
     Active Substance: LEVETIRACETAM
  4. MEDROL [Concomitant]
     Active Substance: METHYLPREDNISOLONE
  5. LYRICA [Suspect]
     Active Substance: PREGABALIN
     Indication: NEURALGIA
     Dosage: 225 MG, 1X/DAY
     Route: 048
     Dates: start: 20170823, end: 20170826
  6. FUROSEMIDE. [Concomitant]
     Active Substance: FUROSEMIDE

REACTIONS (3)
  - Motor dysfunction [Unknown]
  - Disturbance in attention [Unknown]
  - Altered state of consciousness [Unknown]

NARRATIVE: CASE EVENT DATE: 20170826
